FAERS Safety Report 11520794 (Version 3)
Quarter: 2015Q4

REPORT INFORMATION
  Report Type: Spontaneous
  Country: GB (occurrence: GB)
  Receive Date: 20150918
  Receipt Date: 20151026
  Transmission Date: 20160304
  Serious: Yes (Hospitalization, Other)
  Sender: FDA-Public Use
  Company Number: PHFR2015GB006745

PATIENT
  Age: 47 Year
  Sex: Female

DRUGS (1)
  1. CLOZARIL [Suspect]
     Active Substance: CLOZAPINE
     Indication: SCHIZOPHRENIA
     Route: 048
     Dates: start: 20031109, end: 20150919

REACTIONS (12)
  - Encephalitis [Unknown]
  - Off label use [Unknown]
  - Psychotic disorder [Unknown]
  - Neutropenia [Recovered/Resolved]
  - Delirium [Unknown]
  - Mental disorder [Unknown]
  - White blood cell count decreased [Recovered/Resolved]
  - Infection [Unknown]
  - Hypomania [Unknown]
  - Agitation [Unknown]
  - Lymphoma [Not Recovered/Not Resolved]
  - Confusional state [Unknown]

NARRATIVE: CASE EVENT DATE: 201508
